FAERS Safety Report 8814099 (Version 1)
Quarter: 2012Q4

REPORT INFORMATION
  Report Type: Spontaneous
  Country: US (occurrence: None)
  Receive Date: 20120926
  Receipt Date: 20120926
  Transmission Date: 20130627
  Serious: Yes (Hospitalization, Other)
  Sender: FDA-Public Use
  Company Number: None

PATIENT
  Age: 74 Year
  Sex: Female
  Weight: 63.16 kg

DRUGS (8)
  1. METOPROLOL TARTRATE [Suspect]
     Indication: HYPERTENSION
     Dosage: exp date 06/13/2012
RX# 0207536-12564 Walmart
     Route: 048
     Dates: start: 20120913
  2. MICROZIDE [Concomitant]
  3. VERELAN PM [Concomitant]
  4. CATAPREP [Concomitant]
  5. OMEGA 3 [Concomitant]
  6. CENTRUMA SILVER [Concomitant]
  7. VIT D3 [Concomitant]
  8. CALCIUM [Concomitant]

REACTIONS (3)
  - Paraesthesia [None]
  - Pruritus [None]
  - Tongue disorder [None]
